FAERS Safety Report 15504370 (Version 1)
Quarter: 2018Q4

REPORT INFORMATION
  Report Type: Spontaneous
  Country: US (occurrence: US)
  Receive Date: 20181009
  Receipt Date: 20181009
  Transmission Date: 20190205
  Serious: Yes (Life-Threatening, Hospitalization, Other)
  Sender: FDA-Public Use
  Company Number: None

PATIENT
  Age: 67 Year
  Sex: Female
  Weight: 58.05 kg

DRUGS (9)
  1. LEVOTHYROXINE. [Concomitant]
     Active Substance: LEVOTHYROXINE
  2. VITAMIN D [Concomitant]
     Active Substance: CHOLECALCIFEROL
  3. VITAMIN C [Concomitant]
     Active Substance: ASCORBIC ACID
  4. VITAMIN [Concomitant]
     Active Substance: VITAMINS
  5. TURMERIC [Concomitant]
     Active Substance: HERBALS\TURMERIC
  6. BIOTIN [Concomitant]
     Active Substance: BIOTIN
  7. MAGNESIUM [Concomitant]
     Active Substance: MAGNESIUM
  8. PRIMROSE OIL [Concomitant]
  9. TAMOXIFEN 20 MG [Suspect]
     Active Substance: TAMOXIFEN
     Indication: BREAST CANCER RECURRENT
     Dosage: ?          QUANTITY:30 TABLET(S);?
     Route: 048
     Dates: start: 20180601, end: 20181008

REACTIONS (3)
  - Ischaemic stroke [None]
  - Dizziness [None]
  - Hemiparesis [None]

NARRATIVE: CASE EVENT DATE: 20180918
